APPROVED DRUG PRODUCT: MOXIFLOXACIN HYDROCHLORIDE
Active Ingredient: MOXIFLOXACIN HYDROCHLORIDE
Strength: EQ 0.5% BASE
Dosage Form/Route: SOLUTION/DROPS;OPHTHALMIC
Application: A217988 | Product #001 | TE Code: AT1
Applicant: MANKIND PHARMA LTD
Approved: Jan 27, 2025 | RLD: No | RS: No | Type: RX